FAERS Safety Report 17766617 (Version 4)
Quarter: 2020Q3

REPORT INFORMATION
  Report Type: Spontaneous
  Country: US (occurrence: US)
  Receive Date: 20200511
  Receipt Date: 20200709
  Transmission Date: 20201102
  Serious: No
  Sender: FDA-Public Use
  Company Number: US-VERTEX PHARMACEUTICALS-2020-010382

PATIENT
  Age: 26 Year
  Sex: Female

DRUGS (5)
  1. TRIKAFTA [Interacting]
     Active Substance: ELEXACAFTOR\IVACAFTOR\TEZACAFTOR
     Dosage: REDUCED DOSE (1 ORANGE TAB IN THE MORNING AND 1 BLUE TAB IN EVENING
     Route: 048
     Dates: start: 20200429
  2. CLONAZEPAM. [Concomitant]
     Active Substance: CLONAZEPAM
  3. TRIKAFTA [Suspect]
     Active Substance: ELEXACAFTOR\IVACAFTOR\TEZACAFTOR
     Indication: CYSTIC FIBROSIS
     Dosage: REDUCED DOSE (1 ORANGE TAB IN THE MORNING AND 1 BLUE TAB IN EVENING
     Route: 048
     Dates: start: 20200103, end: 20200415
  4. CITALOPRAM [Concomitant]
     Active Substance: CITALOPRAM HYDROBROMIDE
  5. BUSPAR [Concomitant]
     Active Substance: BUSPIRONE HYDROCHLORIDE

REACTIONS (2)
  - Sleep disorder [Not Recovered/Not Resolved]
  - Drug interaction [Unknown]

NARRATIVE: CASE EVENT DATE: 2020
